APPROVED DRUG PRODUCT: HALOBETASOL PROPIONATE
Active Ingredient: HALOBETASOL PROPIONATE
Strength: 0.05%
Dosage Form/Route: CREAM;TOPICAL
Application: A077227 | Product #001
Applicant: SUN PHARMA CANADA INC
Approved: Aug 4, 2005 | RLD: No | RS: No | Type: DISCN